FAERS Safety Report 4364848-4 (Version None)
Quarter: 2004Q2

REPORT INFORMATION
  Report Type: 
  Country: None (occurrence: None)
  Receive Date: 20040521
  Receipt Date: 20040430
  Transmission Date: 20050107
  Serious: Yes (Hospitalization)
  Sender: FDA-Public Use
  Company Number: US_0405102761

PATIENT
  Age: 12 Year
  Sex: Male
  Weight: 49 kg

DRUGS (4)
  1. ATOMOXETINE HYDROCHLORIDE [Suspect]
     Indication: ATTENTION DEFICIT/HYPERACTIVITY DISORDER
     Dosage: 87.5 MG/ONCE DAY
     Dates: start: 20040323
  2. PREVACID [Concomitant]
  3. FLONASE [Concomitant]
  4. RISPERDAL [Concomitant]

REACTIONS (1)
  - APPENDICITIS [None]
